FAERS Safety Report 25171891 (Version 1)
Quarter: 2025Q2

REPORT INFORMATION
  Report Type: Spontaneous
  Country: TR (occurrence: TR)
  Receive Date: 20250408
  Receipt Date: 20250408
  Transmission Date: 20250716
  Serious: No
  Sender: ALKEM
  Company Number: TR-ALKEM LABORATORIES LIMITED-TR-ALKEM-2024-21990

PATIENT
  Age: 48 Year
  Sex: Male

DRUGS (1)
  1. ARIPIPRAZOLE [Suspect]
     Active Substance: ARIPIPRAZOLE
     Indication: Persecutory delusion
     Route: 065

REACTIONS (2)
  - Sedation [Unknown]
  - Muscle rigidity [Unknown]
